FAERS Safety Report 12582675 (Version 1)
Quarter: 2016Q3

REPORT INFORMATION
  Report Type: Spontaneous
  Country: NL (occurrence: NL)
  Receive Date: 20160722
  Receipt Date: 20160722
  Transmission Date: 20161109
  Serious: Yes (Hospitalization, Other)
  Sender: FDA-Public Use
  Company Number: PHHY2016NL098570

PATIENT
  Sex: Female

DRUGS (7)
  1. HYDROCORTISONE. [Suspect]
     Active Substance: HYDROCORTISONE
     Indication: ECZEMA
     Dosage: 10 MG/G, UNK
     Route: 061
  2. TACROLIMUS. [Concomitant]
     Active Substance: TACROLIMUS
     Indication: ECZEMA
     Dosage: UNK
     Route: 065
  3. CLOBETASONE [Suspect]
     Active Substance: CLOBETASONE
     Indication: ECZEMA
     Dosage: 0.5 MG/G, UNK
     Route: 061
  4. BETAMETHASONE. [Suspect]
     Active Substance: BETAMETHASONE
     Indication: ECZEMA
     Dosage: 1 MG/G, UNK
     Route: 061
  5. TRIAMCINOLONE [Suspect]
     Active Substance: TRIAMCINOLONE
     Indication: ECZEMA
     Dosage: 0.1 UNK, UNK
     Route: 061
  6. MOMETASONE [Suspect]
     Active Substance: MOMETASONE
     Indication: ECZEMA
     Dosage: UNK
     Route: 061
  7. FLUTICASONE [Suspect]
     Active Substance: FLUTICASONE\FLUTICASONE PROPIONATE
     Indication: ECZEMA
     Dosage: 0.5 MG/G, UNK
     Route: 061

REACTIONS (3)
  - Eczema [Recovering/Resolving]
  - Steroid withdrawal syndrome [Recovering/Resolving]
  - Skin atrophy [Recovering/Resolving]
